FAERS Safety Report 12174793 (Version 1)
Quarter: 2016Q1

REPORT INFORMATION
  Report Type: Spontaneous
  Country: US (occurrence: US)
  Receive Date: 20160314
  Receipt Date: 20160314
  Transmission Date: 20160526
  Serious: Yes (Other)
  Sender: FDA-Public Use
  Company Number: US-BEH-2016059784

PATIENT
  Sex: Female
  Weight: 108 kg

DRUGS (22)
  1. MUCOMYST [Concomitant]
     Active Substance: ACETYLCYSTEINE
  2. SINGULAIR [Concomitant]
     Active Substance: MONTELUKAST SODIUM
  3. DUONEB [Concomitant]
     Active Substance: ALBUTEROL SULFATE\IPRATROPIUM BROMIDE
  4. SPIRIVA [Concomitant]
     Active Substance: TIOTROPIUM BROMIDE MONOHYDRATE
  5. HIZENTRA [Suspect]
     Active Substance: HUMAN IMMUNOGLOBULIN G
     Indication: IMMUNODEFICIENCY COMMON VARIABLE
     Route: 058
     Dates: start: 20120718
  6. HIZENTRA [Suspect]
     Active Substance: HUMAN IMMUNOGLOBULIN G
     Route: 058
     Dates: start: 20120718
  7. ZYVOX [Concomitant]
     Active Substance: LINEZOLID
  8. HYDROCODONE [Concomitant]
     Active Substance: HYDROCODONE
  9. ZOFRAN [Concomitant]
     Active Substance: ONDANSETRON HYDROCHLORIDE
  10. HIZENTRA [Suspect]
     Active Substance: HUMAN IMMUNOGLOBULIN G
     Indication: BLOOD IMMUNOGLOBULIN G DECREASED
     Route: 058
     Dates: start: 20120718
  11. SODIUM CHLORIDE. [Concomitant]
     Active Substance: SODIUM CHLORIDE
  12. CLONAZEPAM. [Concomitant]
     Active Substance: CLONAZEPAM
  13. ALBUTEROL. [Concomitant]
     Active Substance: ALBUTEROL
  14. EPIPEN [Concomitant]
     Active Substance: EPINEPHRINE
  15. HIZENTRA [Concomitant]
     Active Substance: HUMAN IMMUNOGLOBULIN G
  16. TRAMADOL. [Concomitant]
     Active Substance: TRAMADOL
  17. BENZONATATE. [Concomitant]
     Active Substance: BENZONATATE
  18. NORVIR [Concomitant]
     Active Substance: RITONAVIR
  19. PREDNISONE. [Concomitant]
     Active Substance: PREDNISONE
  20. CODEINE SULFATE. [Concomitant]
     Active Substance: CODEINE SULFATE
  21. LASIX [Concomitant]
     Active Substance: FUROSEMIDE
  22. DOXYCYCLINE. [Concomitant]
     Active Substance: DOXYCYCLINE

REACTIONS (1)
  - Pneumonia [Unknown]
